FAERS Safety Report 9380647 (Version 1)
Quarter: 2013Q2

REPORT INFORMATION
  Report Type: Spontaneous
  Country: US (occurrence: None)
  Receive Date: 20130628
  Receipt Date: 20130628
  Transmission Date: 20140414
  Serious: Yes (Other)
  Sender: FDA-Public Use
  Company Number: 2013SA063341

PATIENT
  Sex: Male

DRUGS (1)
  1. ICY HOT NO MESS [Suspect]
     Dates: start: 20130620

REACTIONS (2)
  - Application site burn [None]
  - Application site erythema [None]
